FAERS Safety Report 10694194 (Version 6)
Quarter: 2015Q2

REPORT INFORMATION
  Report Type: Report from Study
  Country: CA (occurrence: CA)
  Receive Date: 20150106
  Receipt Date: 20150624
  Transmission Date: 20150821
  Serious: Yes (Other)
  Sender: FDA-Public Use
  Company Number: CA-CELGENE-CAN-2014125733

PATIENT
  Age: 85 Year
  Sex: Male

DRUGS (49)
  1. METHOCARBAMOL. [Concomitant]
     Active Substance: METHOCARBAMOL
     Indication: ADVERSE EVENT
     Route: 065
     Dates: start: 20150201, end: 20150422
  2. TUMS [Concomitant]
     Active Substance: CALCIUM CARBONATE
     Indication: ADVERSE EVENT
     Route: 065
     Dates: start: 20150305, end: 20150422
  3. HEPARIN [Concomitant]
     Active Substance: HEPARIN SODIUM
     Indication: PRODUCT USED FOR UNKNOWN INDICATION
     Route: 065
     Dates: start: 20150411, end: 20150417
  4. HYDROMORPHONE [Concomitant]
     Active Substance: HYDROMORPHONE
     Route: 041
     Dates: start: 20150419, end: 20150422
  5. METOPROLOL SUCCINATE. [Concomitant]
     Active Substance: METOPROLOL SUCCINATE
     Indication: PRODUCT USED FOR UNKNOWN INDICATION
     Route: 065
     Dates: start: 200804, end: 20150422
  6. ZYLOPRIM [Concomitant]
     Active Substance: ALLOPURINOL
     Indication: PRODUCT USED FOR UNKNOWN INDICATION
     Route: 065
     Dates: start: 200805, end: 20150422
  7. COLCHICINE. [Concomitant]
     Active Substance: COLCHICINE
     Indication: PRODUCT USED FOR UNKNOWN INDICATION
     Route: 065
     Dates: start: 20121212, end: 20150422
  8. IBUPROFEN. [Concomitant]
     Active Substance: IBUPROFEN
     Indication: ADVERSE EVENT
     Route: 065
     Dates: start: 20150414, end: 20150414
  9. HYDROMORPHONE [Concomitant]
     Active Substance: HYDROMORPHONE
     Indication: ADVERSE EVENT
     Route: 048
     Dates: start: 20150415, end: 20150417
  10. ASA [Concomitant]
     Active Substance: ASPIRIN
     Route: 065
     Dates: start: 20150411, end: 20150411
  11. MYLAN CLOPIDOGREL [Concomitant]
     Indication: PRODUCT USED FOR UNKNOWN INDICATION
     Route: 065
     Dates: start: 20121103, end: 20150422
  12. IMODIUM [Concomitant]
     Active Substance: LOPERAMIDE HYDROCHLORIDE
     Indication: ADVERSE EVENT
     Route: 065
     Dates: start: 20141013, end: 20150422
  13. STOOL SOFTENER [Concomitant]
     Active Substance: DOCUSATE CALCIUM
     Indication: ADVERSE EVENT
     Route: 065
     Dates: start: 2012, end: 20150422
  14. IBUPROFEN. [Concomitant]
     Active Substance: IBUPROFEN
     Route: 065
     Dates: start: 20150414, end: 20150416
  15. ONDANSETRON [Concomitant]
     Active Substance: ONDANSETRON
     Indication: ADVERSE EVENT
     Route: 048
     Dates: start: 20150411, end: 20150417
  16. HALOPERIDOL. [Concomitant]
     Active Substance: HALOPERIDOL
     Indication: ADVERSE EVENT
     Route: 065
     Dates: start: 20150414, end: 20150417
  17. HALOPERIDOL. [Concomitant]
     Active Substance: HALOPERIDOL
     Route: 065
     Dates: start: 20150417, end: 20150422
  18. HALOPERIDOL. [Concomitant]
     Active Substance: HALOPERIDOL
     Route: 050
     Dates: start: 20150417, end: 20150418
  19. INDOMETHACIN. [Concomitant]
     Active Substance: INDOMETHACIN
     Indication: ADVERSE EVENT
     Route: 065
     Dates: start: 2013, end: 20150422
  20. FRUIT LAXATIVE [Concomitant]
     Indication: ADVERSE EVENT
     Route: 065
     Dates: start: 20150411, end: 20150418
  21. SENOKOT [Concomitant]
     Active Substance: SENNOSIDES
     Indication: PRODUCT USED FOR UNKNOWN INDICATION
     Route: 065
     Dates: start: 20150411, end: 20150418
  22. VITAMIN D [Concomitant]
     Active Substance: CHOLECALCIFEROL
     Indication: PRODUCT USED FOR UNKNOWN INDICATION
     Route: 065
     Dates: start: 201409, end: 20150422
  23. DEXAMETHASONE. [Suspect]
     Active Substance: DEXAMETHASONE
     Indication: PLASMA CELL MYELOMA
     Route: 048
     Dates: start: 20121116
  24. ADALAT CC [Concomitant]
     Active Substance: NIFEDIPINE
     Indication: PRODUCT USED FOR UNKNOWN INDICATION
     Dosage: 40 MILLIGRAM
     Route: 065
     Dates: start: 200001, end: 20150422
  25. ASA [Concomitant]
     Active Substance: ASPIRIN
     Indication: PRODUCT USED FOR UNKNOWN INDICATION
     Route: 065
     Dates: start: 201211, end: 20150422
  26. LACTULOSE. [Concomitant]
     Active Substance: LACTULOSE
     Indication: ADVERSE EVENT
     Route: 065
     Dates: start: 20150411, end: 20150418
  27. TYLENOL [Concomitant]
     Active Substance: ACETAMINOPHEN
     Indication: PRODUCT USED FOR UNKNOWN INDICATION
     Route: 065
     Dates: start: 20131209, end: 20150422
  28. TYLENOL ARTHRITIS PAIN [Concomitant]
     Active Substance: ACETAMINOPHEN
     Indication: ADVERSE EVENT
     Route: 065
     Dates: start: 2014
  29. OXYGEN. [Concomitant]
     Active Substance: OXYGEN
     Indication: PRODUCT USED FOR UNKNOWN INDICATION
     Route: 065
     Dates: start: 20150411, end: 20150418
  30. HYDROMORPHONE [Concomitant]
     Active Substance: HYDROMORPHONE
     Route: 048
     Dates: start: 20150414, end: 20150415
  31. HYDROMORPHONE [Concomitant]
     Active Substance: HYDROMORPHONE
     Route: 048
     Dates: start: 20150415, end: 20150417
  32. HYDROMORPHONE [Concomitant]
     Active Substance: HYDROMORPHONE
     Route: 041
     Dates: start: 20150417, end: 20150422
  33. NORVASC [Concomitant]
     Active Substance: AMLODIPINE BESYLATE
     Indication: PRODUCT USED FOR UNKNOWN INDICATION
     Route: 065
     Dates: start: 201211, end: 20150422
  34. BENYLIN [Concomitant]
     Active Substance: DIPHENHYDRAMINE HYDROCHLORIDE
     Indication: PRODUCT USED FOR UNKNOWN INDICATION
     Route: 065
     Dates: start: 20140625
  35. MORPHINE SULFATE. [Concomitant]
     Active Substance: MORPHINE SULFATE
     Indication: ADVERSE EVENT
     Route: 065
     Dates: start: 20150401, end: 20150422
  36. LEVOFLOXACIN. [Concomitant]
     Active Substance: LEVOFLOXACIN
     Indication: ADVERSE EVENT
     Route: 065
     Dates: start: 20150411, end: 20150411
  37. MORPHINE [Concomitant]
     Active Substance: MORPHINE
     Route: 041
     Dates: start: 20150414, end: 20150414
  38. ACETAMINOPHEN. [Concomitant]
     Active Substance: ACETAMINOPHEN
     Indication: ADVERSE EVENT
     Route: 065
     Dates: start: 20150411, end: 20150417
  39. ACETAMINOPHEN. [Concomitant]
     Active Substance: ACETAMINOPHEN
     Route: 048
     Dates: start: 20150417, end: 20150418
  40. ONDANSETRON [Concomitant]
     Active Substance: ONDANSETRON
     Route: 041
     Dates: start: 20150411, end: 20150418
  41. REVLIMID [Suspect]
     Active Substance: LENALIDOMIDE
     Indication: PLASMA CELL MYELOMA
     Dosage: 10 MILLIGRAM
     Route: 048
     Dates: start: 20121116
  42. LACTULOSE. [Concomitant]
     Active Substance: LACTULOSE
     Indication: PRODUCT USED FOR UNKNOWN INDICATION
     Route: 065
     Dates: start: 20121128, end: 20150422
  43. RAMIPRIL. [Concomitant]
     Active Substance: RAMIPRIL
     Indication: PRODUCT USED FOR UNKNOWN INDICATION
     Route: 065
     Dates: start: 200805, end: 20150422
  44. CODEINE PHOSPHATE [Concomitant]
     Active Substance: CODEINE PHOSPHATE
     Indication: ADVERSE EVENT
     Route: 065
     Dates: start: 20150219, end: 20150401
  45. AZITHROMYCIN [Concomitant]
     Active Substance: AZITHROMYCIN ANHYDROUS
     Indication: ADVERSE EVENT
     Route: 065
     Dates: start: 20150411, end: 20150422
  46. CEFTRIAXONE. [Concomitant]
     Active Substance: CEFTRIAXONE
     Indication: ADVERSE EVENT
     Route: 065
     Dates: start: 20150411, end: 20150417
  47. MORPHINE [Concomitant]
     Active Substance: MORPHINE
     Indication: ADVERSE EVENT
     Route: 048
     Dates: start: 20150411, end: 20150414
  48. GLYCERIN. [Concomitant]
     Active Substance: GLYCERIN
     Indication: ADVERSE EVENT
     Route: 065
     Dates: start: 20150411, end: 20150418
  49. HYDROMORPHONE [Concomitant]
     Active Substance: HYDROMORPHONE
     Route: 041
     Dates: start: 20150417, end: 20150418

REACTIONS (1)
  - Lung adenocarcinoma metastatic [Not Recovered/Not Resolved]

NARRATIVE: CASE EVENT DATE: 20141210
